FAERS Safety Report 21506875 (Version 3)
Quarter: 2023Q1

REPORT INFORMATION
  Report Type: Spontaneous
  Country: JP (occurrence: JP)
  Receive Date: 20221026
  Receipt Date: 20230125
  Transmission Date: 20230417
  Serious: Yes (Other)
  Sender: FDA-Public Use
  Company Number: JP-TEVA-2022-JP-2820695

PATIENT
  Age: 26 Year
  Sex: Female

DRUGS (4)
  1. MODAFINIL [Suspect]
     Active Substance: MODAFINIL
     Indication: Somnolence
     Dosage: 300 MILLIGRAM DAILY; FOR 2 WEEKS
     Route: 048
     Dates: start: 20220829, end: 20220912
  2. MODAFINIL [Suspect]
     Active Substance: MODAFINIL
     Indication: Narcolepsy
     Dosage: 200 MILLIGRAM DAILY; FOR 10 DAYS
     Route: 048
     Dates: start: 20220913, end: 20220922
  3. BROTIZOLAM [Concomitant]
     Active Substance: BROTIZOLAM
     Indication: Product used for unknown indication
     Dosage: .25 MILLIGRAM DAILY;
     Route: 048
     Dates: start: 20220705
  4. LEXAPRO [Concomitant]
     Active Substance: ESCITALOPRAM OXALATE
     Indication: Product used for unknown indication
     Dosage: 10 MILLIGRAM DAILY;
     Route: 065
     Dates: start: 20220815

REACTIONS (1)
  - Dystonia [Unknown]
